FAERS Safety Report 8251954-7 (Version None)
Quarter: 2012Q2

REPORT INFORMATION
  Report Type: 
  Country: None (occurrence: None)
  Receive Date: 20120402
  Receipt Date: 20120321
  Transmission Date: 20120825
  Serious: Yes (Other)
  Sender: FDA-Public Use
  Company Number: CHPA2012US005472

PATIENT
  Age: 83 Year
  Sex: Female

DRUGS (2)
  1. EXCEDRIN EXTRA STRENGTH TABLETS [Suspect]
     Dosage: 2 DF, QD
     Route: 048
     Dates: start: 19840101
  2. EXCEDRIN EXTRA STRENGTH TABLETS [Suspect]
     Indication: MALAISE
     Dosage: 1 DF, QD
     Route: 048

REACTIONS (4)
  - DRUG DEPENDENCE [None]
  - UNDERDOSE [None]
  - OFF LABEL USE [None]
  - INCORRECT DRUG ADMINISTRATION DURATION [None]
